FAERS Safety Report 10310276 (Version 2)
Quarter: 2014Q3

REPORT INFORMATION
  Report Type: Spontaneous
  Country: US (occurrence: US)
  Receive Date: 20140717
  Receipt Date: 20140728
  Transmission Date: 20150326
  Serious: No
  Sender: FDA-Public Use
  Company Number: US-PFIZER INC-2014195779

PATIENT
  Age: 79 Year
  Sex: Male
  Weight: 63.49 kg

DRUGS (1)
  1. ZYVOX [Suspect]
     Active Substance: LINEZOLID
     Indication: BACTERAEMIA
     Dosage: 600 MG, 2X/DAY
     Route: 048
     Dates: start: 20140703, end: 20140707

REACTIONS (4)
  - Dizziness [Recovering/Resolving]
  - Dyspnoea [Recovering/Resolving]
  - Nausea [Recovering/Resolving]
  - Asthenia [Recovering/Resolving]

NARRATIVE: CASE EVENT DATE: 201407
